FAERS Safety Report 10235717 (Version 2)
Quarter: 2014Q2

REPORT INFORMATION
  Report Type: Spontaneous
  Country: CN (occurrence: CN)
  Receive Date: 20140613
  Receipt Date: 20140616
  Transmission Date: 20141212
  Serious: Yes (Death, Hospitalization, Other)
  Sender: FDA-Public Use
  Company Number: CN-PFIZER INC-2014163410

PATIENT
  Age: 84 Year
  Sex: Female

DRUGS (1)
  1. ZOLOFT [Suspect]
     Dosage: 100 MG, DAILY
     Route: 048
     Dates: start: 2012

REACTIONS (4)
  - Gastrointestinal haemorrhage [Fatal]
  - Hyperpyrexia [Unknown]
  - Serotonin syndrome [Unknown]
  - Renal failure [Unknown]
